FAERS Safety Report 11446404 (Version 3)
Quarter: 2015Q4

REPORT INFORMATION
  Report Type: Spontaneous
  Country: US (occurrence: None)
  Receive Date: 20150902
  Receipt Date: 20151006
  Transmission Date: 20160304
  Serious: Yes (Other)
  Sender: FDA-Public Use
  Company Number: ADR-2015-01523

PATIENT
  Age: 42 Year
  Sex: Female

DRUGS (1)
  1. LIORESAL [Suspect]
     Active Substance: BACLOFEN
     Indication: MUSCLE SPASTICITY
     Dosage: 360 MCG/DAY

REACTIONS (4)
  - Device occlusion [None]
  - Device power source issue [None]
  - Muscle spasticity [None]
  - Medical device site swelling [None]
